FAERS Safety Report 13005204 (Version 1)
Quarter: 2016Q4

REPORT INFORMATION
  Report Type: Spontaneous
  Country: US (occurrence: US)
  Receive Date: 20161207
  Receipt Date: 20161207
  Transmission Date: 20170207
  Serious: No
  Sender: FDA-Public Use
  Company Number: US-TEVA-694209USA

PATIENT
  Sex: Female

DRUGS (1)
  1. GUAIFENESIN W/PSEUDOEPHEDRINE [Suspect]
     Active Substance: GUAIFENESIN\PSEUDOEPHEDRINE HYDROCHLORIDE
     Indication: PRODUCT USED FOR UNKNOWN INDICATION
     Dosage: 1 DF= 60MG PSEUDOEPHEDRINE HCL + 600MG GUAIFENESIN
     Route: 048
     Dates: start: 201608

REACTIONS (3)
  - Dry mouth [Unknown]
  - Nausea [Unknown]
  - Vomiting [Unknown]

NARRATIVE: CASE EVENT DATE: 201608
